FAERS Safety Report 10020698 (Version 1)
Quarter: 2013Q4

REPORT INFORMATION
  Report Type: Spontaneous
  Country: FR (occurrence: None)
  Receive Date: 20131127
  Receipt Date: 20131127
  Transmission Date: 20140711
  Serious: Yes (Hospitalization, Other)
  Sender: FDA-Public Use
  Company Number: 2013-FR-001899

PATIENT
  Age: 21 Year
  Sex: Male

DRUGS (2)
  1. XYREM (SODIUM OXYBATE) ORAL SOLUTION, 500MG/ML [Suspect]
     Indication: NARCOLEPSY
     Route: 048
     Dates: start: 20110906, end: 20111006
  2. XYREM (SODIUM OXYBATE) ORAL SOLUTION, 500MG/ML [Suspect]
     Indication: CATAPLEXY
     Route: 048
     Dates: start: 20110906, end: 20111006

REACTIONS (3)
  - Anaemia [None]
  - Anal fissure [None]
  - Rectal haemorrhage [None]
